FAERS Safety Report 11026150 (Version 2)
Quarter: 2015Q3

REPORT INFORMATION
  Report Type: Spontaneous
  Country: PT (occurrence: PT)
  Receive Date: 20150414
  Receipt Date: 20150911
  Transmission Date: 20151125
  Serious: Yes (Other)
  Sender: FDA-Public Use
  Company Number: PT-ACTAVIS-2015-07542

PATIENT
  Age: 52 Year
  Sex: Female

DRUGS (4)
  1. ONDANSETROM                        /00955301/ [Concomitant]
     Indication: ALLERGY PROPHYLAXIS
     Dosage: 8 MG, DAILY
     Route: 042
  2. HERCEPTIN [Concomitant]
     Active Substance: TRASTUZUMAB
     Indication: BREAST CANCER
     Dosage: UNK
     Route: 042
     Dates: start: 20150220, end: 20150220
  3. DOCETAXEL ACTAVIS [Suspect]
     Active Substance: DOCETAXEL
     Indication: BREAST CANCER
     Dosage: 100 MG/M2, 1/ THREE WEEKS
     Route: 042
     Dates: start: 20150220, end: 20150220
  4. DEXAMETASONA                       /00016001/ [Concomitant]
     Indication: ALLERGY PROPHYLAXIS
     Dosage: 20 MG, DAILY
     Route: 042

REACTIONS (2)
  - Injection site discolouration [Unknown]
  - Skin lesion [Unknown]

NARRATIVE: CASE EVENT DATE: 20150220
